FAERS Safety Report 22088928 (Version 5)
Quarter: 2023Q2

REPORT INFORMATION
  Report Type: Spontaneous
  Country: JP (occurrence: JP)
  Receive Date: 20230313
  Receipt Date: 20230614
  Transmission Date: 20230721
  Serious: Yes (Other)
  Sender: FDA-Public Use
  Company Number: JP-CHUGAI-2023007928

PATIENT
  Age: 67 Year
  Sex: Female
  Weight: 43.5 kg

DRUGS (3)
  1. VABYSMO [Suspect]
     Active Substance: FARICIMAB-SVOA
     Indication: Neovascular age-related macular degeneration
     Dosage: 0.05 MILLILITER, ONCE/MONTH.
     Route: 031
     Dates: start: 20221115, end: 20230207
  2. VABYSMO [Suspect]
     Active Substance: FARICIMAB-SVOA
     Indication: Choroidal neovascularisation
  3. GATIFLOXACIN SESQUIHYDRATE [Concomitant]
     Active Substance: GATIFLOXACIN
     Dosage: UNK
     Route: 047

REACTIONS (2)
  - Retinal occlusive vasculitis [Recovering/Resolving]
  - Oedema [Unknown]

NARRATIVE: CASE EVENT DATE: 20230101
